FAERS Safety Report 12010171 (Version 1)
Quarter: 2016Q1

REPORT INFORMATION
  Report Type: Spontaneous
  Country: US (occurrence: None)
  Receive Date: 20160204
  Receipt Date: 20160204
  Transmission Date: 20160526
  Serious: Yes (Life-Threatening)
  Sender: FDA-Public Use
  Company Number: None

PATIENT
  Age: 22 Day
  Sex: Female
  Weight: 76.66 kg

DRUGS (1)
  1. AZITHROMYCIN 250MG [Suspect]
     Active Substance: AZITHROMYCIN ANHYDROUS
     Indication: INFECTION
     Dosage: 4 PILLS AT ONCE
     Route: 048
     Dates: start: 20160201, end: 20160203

REACTIONS (2)
  - Chromaturia [None]
  - Blood urine present [None]

NARRATIVE: CASE EVENT DATE: 20160203
